FAERS Safety Report 25705478 (Version 1)
Quarter: 2025Q3

REPORT INFORMATION
  Report Type: Spontaneous
  Country: US (occurrence: None)
  Receive Date: 20250819
  Receipt Date: 20250819
  Transmission Date: 20251021
  Serious: Yes (Other)
  Sender: FDA-CTU
  Company Number: None

PATIENT
  Age: 48 Year
  Sex: Female
  Weight: 54 kg

DRUGS (2)
  1. SYNTHROID [Suspect]
     Active Substance: LEVOTHYROXINE SODIUM
  2. ARMOUR THYROID [Concomitant]
     Active Substance: THYROID, PORCINE

REACTIONS (7)
  - Anxiety [None]
  - Palpitations [None]
  - Migraine [None]
  - Product formulation issue [None]
  - Product substitution issue [None]
  - Product availability issue [None]
  - Drug intolerance [None]

NARRATIVE: CASE EVENT DATE: 20200801
